FAERS Safety Report 16520709 (Version 1)
Quarter: 2019Q3

REPORT INFORMATION
  Report Type: Spontaneous
  Country: DE (occurrence: DE)
  Receive Date: 20190702
  Receipt Date: 20190702
  Transmission Date: 20191004
  Serious: Yes (Death, Other)
  Sender: FDA-Public Use
  Company Number: DE-JNJFOC-20190619698

PATIENT
  Age: 60 Year
  Sex: Male

DRUGS (4)
  1. DOXORUBICIN HYDROCHLORIDE UNSPECIFIED [Suspect]
     Active Substance: DOXORUBICIN HYDROCHLORIDE
     Indication: MIXED ADENONEUROENDOCRINE CARCINOMA
     Route: 065
  2. CYCLOPHOSPHAMIDE. [Suspect]
     Active Substance: CYCLOPHOSPHAMIDE
     Indication: MIXED ADENONEUROENDOCRINE CARCINOMA
     Route: 065
  3. CYCLOPHOSPHAMIDE. [Suspect]
     Active Substance: CYCLOPHOSPHAMIDE
     Route: 065
  4. VINCRISTINE [Suspect]
     Active Substance: VINCRISTINE
     Indication: MIXED ADENONEUROENDOCRINE CARCINOMA
     Route: 065

REACTIONS (3)
  - Neoplasm progression [Fatal]
  - Off label use [Unknown]
  - Product use in unapproved indication [Unknown]
